FAERS Safety Report 11854699 (Version 1)
Quarter: 2015Q4

REPORT INFORMATION
  Report Type: Spontaneous
  Country: ES (occurrence: ES)
  Receive Date: 20151221
  Receipt Date: 20151221
  Transmission Date: 20160305
  Serious: Yes (Other)
  Sender: FDA-Public Use
  Company Number: ES-STRIDES ARCOLAB LIMITED-2015SP002232

PATIENT

DRUGS (4)
  1. METHYL AMINOLEVULINATE [Interacting]
     Active Substance: METHYL AMINOLEVULINATE
     Indication: BASAL CELL CARCINOMA
  2. METHYL AMINOLEVULINATE [Interacting]
     Active Substance: METHYL AMINOLEVULINATE
     Indication: ACTINIC KERATOSIS
  3. IMIQUIMOD. [Suspect]
     Active Substance: IMIQUIMOD
     Indication: BASAL CELL CARCINOMA
     Dosage: UNK
     Route: 061
  4. IMIQUIMOD. [Interacting]
     Active Substance: IMIQUIMOD
     Indication: ACTINIC KERATOSIS

REACTIONS (6)
  - Drug interaction [Unknown]
  - Lymphadenopathy [Unknown]
  - B-cell lymphoma [Unknown]
  - Skin plaque [Unknown]
  - Erythema [Unknown]
  - Pulmonary mass [Unknown]
